FAERS Safety Report 9242583 (Version 1)
Quarter: 2013Q2

REPORT INFORMATION
  Report Type: Spontaneous
  Country: US (occurrence: US)
  Receive Date: 20130419
  Receipt Date: 20130419
  Transmission Date: 20140414
  Serious: Yes (Hospitalization)
  Sender: FDA-Public Use
  Company Number: US-MYLANLABS-2013S1007811

PATIENT
  Age: 17 Year
  Sex: Female

DRUGS (4)
  1. BUPROPION HYDROCHLORIDE EXTENDED-RELEASE TABLETS USP, (SR) [Suspect]
     Indication: SUICIDE ATTEMPT
     Dosage: DF = 150MG SUSTAINED-RELEASE TABLET
     Route: 048
  2. BUPROPION HYDROCHLORIDE EXTENDED-RELEASE TABLETS USP, (SR) [Suspect]
     Indication: MAJOR DEPRESSION
     Dosage: DF = 150MG SUSTAINED-RELEASE TABLET
     Route: 048
  3. BUPROPION HYDROCHLORIDE EXTENDED-RELEASE TABLETS USP, (SR) [Suspect]
     Indication: SUICIDE ATTEMPT
     Dosage: 150MG SUSTAINED-RELEASE TABLET
     Route: 065
  4. BUPROPION HYDROCHLORIDE EXTENDED-RELEASE TABLETS USP, (SR) [Suspect]
     Indication: MAJOR DEPRESSION
     Dosage: 150MG SUSTAINED-RELEASE TABLET
     Route: 065

REACTIONS (9)
  - Unresponsive to stimuli [Recovering/Resolving]
  - Convulsion [Recovered/Resolved]
  - Hypokalaemia [Recovered/Resolved]
  - Acidosis hyperchloraemic [Recovering/Resolving]
  - Hypocalcaemia [Recovered/Resolved]
  - Hypoglycaemia [Recovered/Resolved]
  - Overdose [Recovering/Resolving]
  - Suicide attempt [Recovering/Resolving]
  - Vomiting [Recovering/Resolving]
